FAERS Safety Report 5000718-6 (Version None)
Quarter: 2006Q2

REPORT INFORMATION
  Report Type: 
  Country: None (occurrence: None)
  Receive Date: 20060512
  Receipt Date: 20060508
  Transmission Date: 20061013
  Serious: Yes (Hospitalization)
  Sender: FDA-Public Use
  Company Number: US-AMGEN-US176848

PATIENT
  Sex: Male

DRUGS (10)
  1. EPOGEN [Suspect]
     Indication: DIALYSIS
     Route: 058
     Dates: start: 20060101
  2. IRON [Concomitant]
  3. FOLIC ACID [Concomitant]
  4. CALCIUM GLUCONATE [Concomitant]
  5. VITAMINS [Concomitant]
  6. VASOTEC [Concomitant]
  7. PRILOSEC [Concomitant]
  8. LAMICTAL [Concomitant]
  9. DILANTIN [Concomitant]
  10. AMLODIPINE [Concomitant]

REACTIONS (2)
  - DRUG INEFFECTIVE [None]
  - ENDOCARDITIS [None]
